FAERS Safety Report 7922924-0 (Version None)
Quarter: 2011Q4

REPORT INFORMATION
  Report Type: 
  Country: None (occurrence: None)
  Receive Date: 20111117
  Receipt Date: 20111026
  Transmission Date: 20120403
  Serious: No
  Sender: FDA-Public Use
  Company Number: US-ALLERGAN-1114171US

PATIENT
  Age: 25 Year
  Sex: Female
  Weight: 70.295 kg

DRUGS (1)
  1. LASTACAFT [Suspect]
     Indication: EYE ALLERGY
     Dosage: 2 GTT, QAM
     Route: 047
     Dates: start: 20110901, end: 20111001

REACTIONS (3)
  - EYE PRURITUS [None]
  - EYE IRRITATION [None]
  - OCULAR HYPERAEMIA [None]
